FAERS Safety Report 23048916 (Version 1)
Quarter: 2023Q4

REPORT INFORMATION
  Report Type: Spontaneous
  Country: IT (occurrence: IT)
  Receive Date: 20231010
  Receipt Date: 20231010
  Transmission Date: 20240109
  Serious: Yes (Other)
  Sender: FDA-Public Use
  Company Number: None

PATIENT
  Age: 77 Year
  Sex: Female

DRUGS (3)
  1. DOCETAXEL [Suspect]
     Active Substance: DOCETAXEL
     Indication: Breast cancer
     Dosage: 120 MG, Q3W (I CYCLE - THERAPY START 15/09/2023 - THERAPY EVERY 21 DAYS)
     Route: 042
     Dates: start: 20230915, end: 20230915
  2. TRASTUZUMAB [Suspect]
     Active Substance: TRASTUZUMAB
     Indication: Breast cancer
     Dosage: 800 MG, Q3W (I CYCLE - THERAPY START 15/09/2023 - THERAPY EVERY 21 DAYS)
     Route: 042
     Dates: start: 20230915, end: 20230915
  3. PERTUZUMAB [Suspect]
     Active Substance: PERTUZUMAB
     Indication: Breast cancer
     Dosage: 840 MG, Q3W (I CYCLE - THERAPY START 15/09/2023 - THERAPY EVERY 21 DAYS)
     Route: 042
     Dates: start: 20230915, end: 20230915

REACTIONS (2)
  - Leukopenia [Not Recovered/Not Resolved]
  - Neutropenia [Not Recovered/Not Resolved]

NARRATIVE: CASE EVENT DATE: 20230921
